FAERS Safety Report 10648863 (Version 2)
Quarter: 2015Q2

REPORT INFORMATION
  Report Type: Spontaneous
  Country: CH (occurrence: CH)
  Receive Date: 20141212
  Receipt Date: 20150424
  Transmission Date: 20150821
  Serious: Yes (Other)
  Sender: FDA-Public Use
  Company Number: CH-TEVA-527282ISR

PATIENT
  Age: 84 Year
  Sex: Female

DRUGS (5)
  1. NOPIL [Suspect]
     Active Substance: SULFAMETHOXAZOLE\TRIMETHOPRIM
     Indication: OSTEOMYELITIS
     Route: 048
     Dates: start: 20140925, end: 20141005
  2. FOSAMAX 70 MG [Concomitant]
     Dosage: 10 MILLIGRAM DAILY; LONG TERM
     Route: 048
  3. FOLIC ACID. [Concomitant]
     Active Substance: FOLIC ACID
     Dosage: 5 MILLIGRAM DAILY; LONG TERM
     Route: 048
  4. PANTOZOL 20 MG [Concomitant]
     Dosage: 20 MILLIGRAM DAILY; LONG TERM
     Route: 048
  5. REDORMIN [Concomitant]
     Dosage: 1 DOSAGE FORMS DAILY; LONG TERM, 1 DF = 250 MG VALERIAN, 60 MG HOPS, 45% METHANOL
     Route: 048

REACTIONS (6)
  - Eosinophilia [Recovering/Resolving]
  - Rash macular [Recovered/Resolved]
  - Drug reaction with eosinophilia and systemic symptoms [Recovered/Resolved]
  - Pyrexia [Recovered/Resolved]
  - Acute kidney injury [Recovered/Resolved]
  - Hypotension [Unknown]

NARRATIVE: CASE EVENT DATE: 20141005
